FAERS Safety Report 20167412 (Version 1)
Quarter: 2021Q4

REPORT INFORMATION
  Report Type: Spontaneous
  Country: US (occurrence: US)
  Receive Date: 20211209
  Receipt Date: 20211209
  Transmission Date: 20220303
  Serious: Yes (Life-Threatening, Hospitalization, Other)
  Sender: FDA-Public Use
  Company Number: US-ALLERGAN-2141688US

PATIENT
  Sex: Male

DRUGS (1)
  1. TESTOSTERONE [Suspect]
     Active Substance: TESTOSTERONE
     Indication: Hypogonadism
     Dosage: UNK

REACTIONS (6)
  - Sepsis [Unknown]
  - Renal failure [Unknown]
  - Cholangiocarcinoma [Unknown]
  - Mesenteric neoplasm [Unknown]
  - Metastases to peritoneum [Unknown]
  - Ascites [Unknown]
